FAERS Safety Report 4896786-2 (Version None)
Quarter: 2006Q1

REPORT INFORMATION
  Report Type: 
  Country: None (occurrence: None)
  Receive Date: 20060131
  Receipt Date: 20060120
  Transmission Date: 20060701
  Serious: Yes (Other)
  Sender: FDA-Public Use
  Company Number: US-SANOFI-SYNTHELABO-A03200600380

PATIENT
  Age: 56 Year
  Sex: Female

DRUGS (1)
  1. AMBIEN [Suspect]
     Indication: DRUG USE FOR UNKNOWN INDICATION
     Route: 048

REACTIONS (7)
  - ABASIA [None]
  - AMNESIA [None]
  - ASTHENIA [None]
  - DISORIENTATION [None]
  - DYSARTHRIA [None]
  - FALL [None]
  - LOSS OF CONSCIOUSNESS [None]
